FAERS Safety Report 8082350-3 (Version None)
Quarter: 2012Q1

REPORT INFORMATION
  Report Type: 
  Country: None (occurrence: None)
  Receive Date: 20120127
  Receipt Date: 20110217
  Transmission Date: 20120608
  Serious: No
  Sender: FDA-Public Use
  Company Number: US-ABBOTT-11P-163-0705907-00

PATIENT
  Age: 80 Year
  Sex: Female

DRUGS (4)
  1. HUMIRA [Suspect]
     Indication: RHEUMATOID ARTHRITIS
     Dates: start: 20110217
  2. HUMIRA [Suspect]
     Dosage: HUMIRA PRE-FILLED SYRINGE, QOW
     Dates: start: 20101001, end: 20110217
  3. METHOTREXATE [Concomitant]
     Indication: PRODUCT USED FOR UNKNOWN INDICATION
     Dosage: 6 TABS WEEKLY SAME DAY AS HUMIRA
  4. SINGULAIR [Concomitant]
     Indication: ASTHMA

REACTIONS (1)
  - INJECTION SITE PAIN [None]
